FAERS Safety Report 7048555-5 (Version None)
Quarter: 2010Q4

REPORT INFORMATION
  Report Type: 
  Country: None (occurrence: None)
  Receive Date: 20101008
  Receipt Date: 20100929
  Transmission Date: 20110411
  Serious: Yes (Life-Threatening, Hospitalization, Other)
  Sender: FDA-Public Use
  Company Number: 2010AC000518

PATIENT
  Age: 78 Year
  Sex: Male

DRUGS (26)
  1. DIGOXIN [Suspect]
     Indication: ATRIAL FIBRILLATION
     Dosage: 0.75 MG;QD;PO
     Route: 048
     Dates: start: 20070129, end: 20070129
  2. DIGOXIN [Suspect]
     Dosage: 0.125 MG;QD;PO
     Route: 048
     Dates: start: 20070206, end: 20070523
  3. DIGOXIN [Suspect]
     Dosage: 0.25 MG;QD;PO
     Route: 048
     Dates: start: 20070120, end: 20070205
  4. TOPROL-XL [Concomitant]
  5. LASIX [Concomitant]
  6. AMIODARONE HCL [Concomitant]
  7. METFORMIN [Concomitant]
  8. HYDROCHLOROTHIAZIDE [Concomitant]
  9. GLYBURIDE [Concomitant]
  10. LEVOTHYROXINE SODIUM [Concomitant]
  11. TANDEM PLUS [Concomitant]
  12. COUMADIN [Concomitant]
  13. SIMVASTATIN [Concomitant]
  14. ASPIRIN [Concomitant]
  15. CITALOPRAM HYDROBROMIDE [Concomitant]
  16. OMEPRAZOLE [Concomitant]
  17. XOPENEX [Concomitant]
  18. DUO-NEBS [Concomitant]
  19. ROCEPHIN [Concomitant]
  20. ZITHROMAX [Concomitant]
  21. MAGNESIUM [Concomitant]
  22. PREDNISONE [Concomitant]
  23. METOPROLOL [Concomitant]
  24. CELEXA [Concomitant]
  25. HEMOCYTE PLUS [Concomitant]
  26. OXYGEN [Concomitant]

REACTIONS (17)
  - ASTHENIA [None]
  - ATRIAL FIBRILLATION [None]
  - BRADYCARDIA [None]
  - CARDIAC FAILURE CONGESTIVE [None]
  - CHRONIC OBSTRUCTIVE PULMONARY DISEASE [None]
  - DEHYDRATION [None]
  - ECONOMIC PROBLEM [None]
  - ELECTROCARDIOGRAM ST SEGMENT ABNORMAL [None]
  - FAILURE TO THRIVE [None]
  - HYPOTENSION [None]
  - INTERNATIONAL NORMALISED RATIO INCREASED [None]
  - IRON DEFICIENCY ANAEMIA [None]
  - MULTIPLE INJURIES [None]
  - MYXOEDEMA [None]
  - RENAL FAILURE ACUTE [None]
  - THERAPEUTIC AGENT TOXICITY [None]
  - WEIGHT DECREASED [None]
